FAERS Safety Report 21303861 (Version 1)
Quarter: 2022Q3

REPORT INFORMATION
  Report Type: Spontaneous
  Country: US (occurrence: None)
  Receive Date: 20220907
  Receipt Date: 20220907
  Transmission Date: 20221027
  Serious: No
  Sender: FDA-Public Use
  Company Number: None

PATIENT
  Age: 75 Year
  Sex: Female

DRUGS (1)
  1. OTEZLA [Suspect]
     Active Substance: APREMILAST
     Dosage: OTHER QUANTITY : TAKE 1 TABLET;?OTHER FREQUENCY : 2XD 12H APART;?
     Route: 048
     Dates: start: 201902

REACTIONS (2)
  - Back disorder [None]
  - Therapy interrupted [None]
